FAERS Safety Report 5068432-9 (Version None)
Quarter: 2006Q3

REPORT INFORMATION
  Report Type: 
  Country: None (occurrence: None)
  Receive Date: 20060802
  Receipt Date: 20050926
  Transmission Date: 20061208
  Serious: No
  Sender: FDA-Public Use
  Company Number: US-BRISTOL-MYERS SQUIBB COMPANY-13121439

PATIENT
  Age: 73 Year
  Sex: Female
  Weight: 77 kg

DRUGS (3)
  1. COUMADIN [Suspect]
     Indication: ATRIAL FIBRILLATION
     Dosage: CURRENT REGIMEN: 5 MG, 6 DAYS PER WEEK AND 2.5 MG, 1 DAY PER WEEK; DURATION OF THERAPY = 1 YEAR
  2. ATENOLOL [Concomitant]
  3. VITAMINS [Concomitant]

REACTIONS (1)
  - VAGINAL HAEMORRHAGE [None]
